FAERS Safety Report 5655010-3 (Version None)
Quarter: 2008Q1

REPORT INFORMATION
  Report Type: 
  Country: None (occurrence: None)
  Receive Date: 20080307
  Receipt Date: 20071127
  Transmission Date: 20080703
  Serious: No
  Sender: FDA-Public Use
  Company Number: A0688734A

PATIENT
  Age: 60 Year
  Sex: Female
  Weight: 92.3 kg

DRUGS (2)
  1. REQUIP [Suspect]
     Indication: RESTLESS LEGS SYNDROME
     Dosage: 2MG AT NIGHT
     Route: 048
     Dates: start: 20060501
  2. CELEBREX [Concomitant]

REACTIONS (1)
  - TINNITUS [None]
